FAERS Safety Report 6545506-4 (Version None)
Quarter: 2010Q1

REPORT INFORMATION
  Report Type: 
  Country: None (occurrence: None)
  Receive Date: 20100121
  Receipt Date: 20100115
  Transmission Date: 20100710
  Serious: Yes (Death, Other)
  Sender: FDA-Public Use
  Company Number: DE-ROXANE LABORATORIES, INC.-2009-RO-00318RO

PATIENT
  Age: 3 Year
  Sex: Male
  Weight: 14 kg

DRUGS (7)
  1. CODEINE [Suspect]
     Indication: ANTITUSSIVE THERAPY
  2. ACETAMINOPHEN [Suspect]
     Indication: COUGH
  3. ACETAMINOPHEN [Suspect]
     Indication: PYREXIA
  4. IBUPROFEN [Suspect]
     Indication: COUGH
  5. IBUPROFEN [Suspect]
     Indication: PYREXIA
  6. IVY EXTRACT [Suspect]
     Indication: COUGH
  7. IVY EXTRACT [Suspect]
     Indication: PYREXIA

REACTIONS (7)
  - ACCIDENTAL OVERDOSE [None]
  - ASPIRATION [None]
  - BRAIN OEDEMA [None]
  - DEATH [None]
  - DRUG ADMINISTRATION ERROR [None]
  - DRUG TOXICITY [None]
  - VOMITING [None]
